FAERS Safety Report 6191798-3 (Version None)
Quarter: 2009Q2

REPORT INFORMATION
  Report Type: 
  Country: None (occurrence: None)
  Receive Date: 20090515
  Receipt Date: 20090430
  Transmission Date: 20091009
  Serious: Yes (Other)
  Sender: FDA-Public Use
  Company Number: US-PFIZER INC-2009207296

PATIENT
  Sex: Female
  Weight: 57.596 kg

DRUGS (8)
  1. NEURONTIN [Suspect]
     Indication: SLEEP DISORDER
     Dosage: 300 MG, 1X/DAY
     Dates: start: 20081201, end: 20090101
  2. LITHIUM CARBONATE [Suspect]
     Indication: AFFECTIVE DISORDER
     Dosage: UNK
     Dates: end: 20090101
  3. ACYCLOVIR [Suspect]
     Indication: HERPES VIRUS INFECTION
     Dosage: FREQUENCY: 5X/DAY, EVERY DAY;
     Dates: start: 20090101, end: 20090101
  4. ESTRADIOL [Concomitant]
     Dosage: UNK
  5. SYNTHROID [Concomitant]
     Dosage: UNK
  6. NEXIUM [Concomitant]
     Dosage: UNK
  7. VALTREX [Concomitant]
     Indication: HERPES VIRUS INFECTION
     Dosage: UNK
  8. RITALIN [Concomitant]
     Dosage: UNK

REACTIONS (3)
  - HALLUCINATION [None]
  - PARANOIA [None]
  - PSYCHOTIC DISORDER [None]
